FAERS Safety Report 21684160 (Version 1)
Quarter: 2022Q4

REPORT INFORMATION
  Report Type: Other
  Country: None (occurrence: FR)
  Receive Date: 20221205
  Receipt Date: 20221205
  Transmission Date: 20230113
  Serious: Yes (Other)
  Sender: FDA-Public Use
  Company Number: FR-Air Products and Chemicals, Inc. -2135554

PATIENT
  Age: 53 Year
  Sex: Male

DRUGS (1)
  1. OXYGEN [Suspect]
     Active Substance: OXYGEN

REACTIONS (2)
  - Wrong technique in product usage process [None]
  - Thermal burn [None]
